FAERS Safety Report 17152514 (Version 1)
Quarter: 2019Q4

REPORT INFORMATION
  Report Type: Spontaneous
  Country: US (occurrence: US)
  Receive Date: 20191213
  Receipt Date: 20191213
  Transmission Date: 20200122
  Serious: No
  Sender: FDA-Public Use
  Company Number: US-NOVOPROD-654815

PATIENT
  Age: 73 Year
  Sex: Female

DRUGS (1)
  1. LEVEMIR [Suspect]
     Active Substance: INSULIN DETEMIR
     Indication: TYPE 2 DIABETES MELLITUS
     Dosage: UNK
     Route: 058

REACTIONS (11)
  - Injection site induration [Unknown]
  - Injection site bruising [Unknown]
  - Injection site mass [Unknown]
  - Device failure [Unknown]
  - Seasonal allergy [Unknown]
  - Vomiting [Unknown]
  - Extrasystoles [Unknown]
  - Liquid product physical issue [Unknown]
  - Injection site pain [Unknown]
  - Injection site swelling [Unknown]
  - Injection site warmth [Unknown]
